FAERS Safety Report 4345293-4 (Version None)
Quarter: 2004Q2

REPORT INFORMATION
  Report Type: 
  Country: None (occurrence: None)
  Receive Date: 20040420
  Receipt Date: 20040406
  Transmission Date: 20050107
  Serious: Yes (Hospitalization)
  Sender: FDA-Public Use
  Company Number: RENA-10942

PATIENT
  Age: 82 Year
  Sex: Female

DRUGS (12)
  1. RENAGEL [Suspect]
     Indication: HYPERPHOSPHATAEMIA
     Dosage: 2.4 MG QD PO
     Route: 048
     Dates: start: 20031201
  2. SOTALOL HCL [Concomitant]
  3. MINOXIDIL [Concomitant]
  4. REGLAN [Concomitant]
  5. PROTONIX [Concomitant]
  6. SYNTHROID [Concomitant]
  7. FOLIC ACID [Concomitant]
  8. RENAVITE [Concomitant]
  9. ONE A DAY [Concomitant]
  10. COLACE [Concomitant]
  11. WARFARIN [Concomitant]
  12. PREDNISONE [Concomitant]

REACTIONS (3)
  - ARTERIOVENOUS FISTULA THROMBOSIS [None]
  - BLOOD POTASSIUM DECREASED [None]
  - NAUSEA [None]
